FAERS Safety Report 9611719 (Version 1)
Quarter: 2013Q4

REPORT INFORMATION
  Report Type: Spontaneous
  Country: US (occurrence: US)
  Receive Date: 20131010
  Receipt Date: 20131010
  Transmission Date: 20140711
  Serious: No
  Sender: FDA-Public Use
  Company Number: US-PFIZER INC-2013288359

PATIENT
  Age: 39 Year
  Sex: Female
  Weight: 70.3 kg

DRUGS (4)
  1. CELEBREX [Suspect]
     Indication: ARTHRITIS
     Dosage: 200 MG, 1X/DAY
     Route: 048
     Dates: start: 201306, end: 2013
  2. CELEBREX [Suspect]
     Dosage: 200 MG, ALTERNATE DAY
     Route: 048
     Dates: start: 2013, end: 2013
  3. CELEBREX [Suspect]
     Dosage: 200 MG, WEEKLY
     Route: 048
     Dates: start: 2013
  4. VITAMIN C [Concomitant]
     Dosage: UNK

REACTIONS (3)
  - Inappropriate schedule of drug administration [Unknown]
  - Insomnia [Unknown]
  - Alopecia [Unknown]
